FAERS Safety Report 10203616 (Version 1)
Quarter: 2014Q2

REPORT INFORMATION
  Report Type: Spontaneous
  Country: IT (occurrence: IT)
  Receive Date: 20140529
  Receipt Date: 20140529
  Transmission Date: 20141212
  Serious: Yes (Other)
  Sender: FDA-Public Use
  Company Number: IT-RANBAXY-2014RR-81579

PATIENT
  Age: 5 Week
  Sex: Female

DRUGS (2)
  1. AMOXICILLINA E ACIDO CLAVULANICO [Suspect]
     Indication: BRONCHITIS
     Dosage: 3 ML TOTAL
     Route: 048
     Dates: start: 20140424, end: 20140424
  2. BENTELAN [Concomitant]
     Indication: BRONCHITIS
     Dosage: 0.5 MG, UNK
     Route: 048
     Dates: start: 20140424, end: 20140424

REACTIONS (3)
  - Abdominal pain [Recovering/Resolving]
  - Diarrhoea [Recovering/Resolving]
  - Vomiting [Recovering/Resolving]
